FAERS Safety Report 5379323-8 (Version None)
Quarter: 2007Q3

REPORT INFORMATION
  Report Type: 
  Country: None (occurrence: None)
  Receive Date: 20070705
  Receipt Date: 20070627
  Transmission Date: 20080115
  Serious: Yes (Hospitalization, Other)
  Sender: FDA-Public Use
  Company Number: JP-PFIZER INC-2007013982

PATIENT
  Age: 51 Year
  Sex: Female

DRUGS (1)
  1. VIBRAMYCIN [Suspect]
     Indication: ACNE PUSTULAR
     Route: 048

REACTIONS (1)
  - ANTI-NEUTROPHIL CYTOPLASMIC ANTIBODY POSITIVE VASCULITIS [None]
